FAERS Safety Report 7954365-4 (Version None)
Quarter: 2011Q4

REPORT INFORMATION
  Report Type: 
  Country: None (occurrence: None)
  Receive Date: 20111202
  Receipt Date: 20110613
  Transmission Date: 20120403
  Serious: Yes (Other)
  Sender: FDA-Public Use
  Company Number: US-BAYER-201035529NA

PATIENT
  Age: 27 Year
  Sex: Female
  Weight: 102 kg

DRUGS (10)
  1. VOLTAREN [Concomitant]
  2. YAZ [Suspect]
     Indication: PRODUCT USED FOR UNKNOWN INDICATION
     Dosage: UNK
     Dates: start: 20021001, end: 20081101
  3. YASMIN [Suspect]
     Indication: ORAL CONTRACEPTION
     Dosage: UNK
     Dates: start: 20021001, end: 20081101
  4. DROSPIRENONE AND ETHINYL ESTRADIOL [Suspect]
     Indication: PRODUCT USED FOR UNKNOWN INDICATION
     Dosage: UNK
     Dates: start: 20021001, end: 20081101
  5. SEROQUEL [Concomitant]
     Dosage: 200 MG, UNK
  6. PSEUDOEPHEDRINE HCL [Concomitant]
     Dosage: 30 MG, PRN
     Route: 048
  7. PANTOPRAZOLE [Concomitant]
     Indication: GASTROOESOPHAGEAL REFLUX DISEASE
     Dosage: 40 MG, QD
  8. TRAMADOL HCL [Concomitant]
     Indication: PAIN
     Dosage: 50 MG, PRN
     Route: 048
  9. ADDERALL 5 [Concomitant]
     Indication: ATTENTION DEFICIT/HYPERACTIVITY DISORDER
     Dosage: UNK UNK, QD
     Route: 048
  10. PERCOCET [OXYCODONE HYDROCHLORIDE,OXYCODONE TEREPHTHALATE,PARACETA [Concomitant]
     Indication: PAIN
     Dosage: 500 MG, PRN

REACTIONS (2)
  - CHOLECYSTITIS [None]
  - GALLBLADDER DISORDER [None]
